FAERS Safety Report 6056873-2 (Version None)
Quarter: 2009Q1

REPORT INFORMATION
  Report Type: 
  Country: None (occurrence: None)
  Receive Date: 20090129
  Receipt Date: 20090123
  Transmission Date: 20090719
  Serious: Yes (Hospitalization)
  Sender: FDA-Public Use
  Company Number: A0765527A

PATIENT
  Age: 41 Year
  Sex: Male

DRUGS (7)
  1. MELPHALAN [Suspect]
     Indication: AMYLOIDOSIS
     Dosage: 70MGK PER DAY
     Route: 042
     Dates: start: 20080915, end: 20080916
  2. VELCADE [Suspect]
     Indication: AMYLOIDOSIS
  3. DEXAMETHASONE [Suspect]
     Indication: AMYLOIDOSIS
  4. VANCOMYCIN [Concomitant]
     Indication: STEM CELL TRANSPLANT
     Route: 042
     Dates: end: 20081006
  5. ACYCLOVIR [Concomitant]
     Indication: STEM CELL TRANSPLANT
     Route: 048
     Dates: end: 20081006
  6. METOPROLOL [Concomitant]
     Indication: HYPERTENSION
     Route: 048
  7. EPLERENONE [Concomitant]
     Route: 048

REACTIONS (11)
  - ANURIA [None]
  - ATRIAL FIBRILLATION [None]
  - COUGH [None]
  - DIARRHOEA [None]
  - DIZZINESS [None]
  - DYSPNOEA [None]
  - FLUID OVERLOAD [None]
  - PARAINFLUENZAE VIRUS INFECTION [None]
  - PYREXIA [None]
  - RENAL FAILURE ACUTE [None]
  - SEPTIC SHOCK [None]
